FAERS Safety Report 5336479-0 (Version None)
Quarter: 2007Q2

REPORT INFORMATION
  Report Type: 
  Country: None (occurrence: None)
  Receive Date: 20070529
  Receipt Date: 20070516
  Transmission Date: 20071010
  Serious: Yes (Hospitalization)
  Sender: FDA-Public Use
  Company Number: DE-SOLVAY-00307032461

PATIENT
  Age: 875 Month
  Sex: Male

DRUGS (8)
  1. TESTOGEL [Suspect]
     Indication: ANDROGEN DEFICIENCY
     Dosage: DAILY DOSE:  UNKNOWN
     Route: 061
     Dates: start: 20060815
  2. AMITRIPTYLINE HCL [Concomitant]
     Indication: DEPRESSION
     Dosage: DAILY DOSE:  UNKNOWN
     Route: 065
     Dates: start: 20060404
  3. RAMIPRIL [Concomitant]
     Indication: HYPERTENSION
     Dosage: DAILY DOSE:  UNKNOWN
     Route: 065
     Dates: start: 20030101
  4. TESTOGEL VS PLACEBO [Suspect]
     Indication: ANDROGEN DEFICIENCY
     Dosage: DAILY DOSE:  UNKNOWN
     Route: 061
     Dates: start: 20060303, end: 20060801
  5. BISOPROLOL FUMARATE [Concomitant]
     Indication: HYPERTENSION
     Dosage: DAILY DOSE:  UNKNOWN
     Route: 065
     Dates: start: 20030101, end: 20070301
  6. SIMVASTATIN [Concomitant]
     Indication: HYPERLIPIDAEMIA
     Dosage: DAILY DOSE:  UNKNOWN
     Route: 065
     Dates: start: 20030101
  7. ACETYLSALICYLIC ACID SRT [Concomitant]
     Indication: CARDIAC DISORDER
     Dosage: DAILY DOSE:  UNKNOWN
     Route: 065
     Dates: start: 20030101
  8. TAMSULOSIN HCL [Concomitant]
     Indication: BENIGN PROSTATIC HYPERPLASIA
     Dosage: DAILY DOSE:  UNKNOWN
     Route: 065
     Dates: start: 20000101

REACTIONS (8)
  - ANTIBODY TEST POSITIVE [None]
  - ARRHYTHMIA [None]
  - BRADYCARDIA [None]
  - CEREBRAL HAEMORRHAGE [None]
  - FALL [None]
  - FRACTURE [None]
  - LARYNGOPHARYNGITIS [None]
  - SKULL FRACTURE [None]
